FAERS Safety Report 24778883 (Version 1)
Quarter: 2024Q4

REPORT INFORMATION
  Report Type: Spontaneous
  Country: FR (occurrence: FR)
  Receive Date: 20241226
  Receipt Date: 20241226
  Transmission Date: 20250115
  Serious: Yes (Hospitalization)
  Sender: PURDUE
  Company Number: FR-PURDUE-USA-2024-0314266

PATIENT
  Age: 69 Year
  Sex: Male
  Weight: 83 kg

DRUGS (6)
  1. MORPHINE SULFATE [Suspect]
     Active Substance: MORPHINE SULFATE
     Indication: Procedural pain
     Dosage: 1 DOSAGE FORM, DAILY
     Route: 048
     Dates: start: 20240515
  2. KETOPROFEN [Suspect]
     Active Substance: KETOPROFEN
     Indication: Postoperative analgesia
     Dosage: 50 MILLIGRAM, Q6H, 50MG / 6H
     Route: 042
     Dates: start: 20240514, end: 20240514
  3. KETOPROFEN [Suspect]
     Active Substance: KETOPROFEN
     Indication: Postoperative analgesia
     Dosage: 100 MILLIGRAM, DAILY
     Route: 048
     Dates: start: 20240515, end: 20240516
  4. ROSUVASTATIN [Suspect]
     Active Substance: ROSUVASTATIN
     Indication: Hypercholesterolaemia
     Dosage: 5 MILLIGRAM, DAILY
     Route: 048
     Dates: end: 20240513
  5. LOVENOX [Suspect]
     Active Substance: ENOXAPARIN SODIUM
     Indication: Thrombosis prophylaxis
     Dosage: 1 DOSAGE FORM, DAILY
     Route: 058
     Dates: start: 20240514
  6. PANTOPRAZOLE [Suspect]
     Active Substance: PANTOPRAZOLE
     Indication: Prophylaxis against gastrointestinal ulcer
     Dosage: 40 MILLIGRAM, DAILY
     Route: 042
     Dates: start: 20240514

REACTIONS (1)
  - Pancreatitis acute [Recovering/Resolving]

NARRATIVE: CASE EVENT DATE: 20240516
